FAERS Safety Report 24978994 (Version 1)
Quarter: 2025Q1

REPORT INFORMATION
  Report Type: Spontaneous
  Country: US (occurrence: None)
  Receive Date: 20250218
  Receipt Date: 20250218
  Transmission Date: 20250408
  Serious: No
  Sender: ALEXION PHARMACEUTICALS
  Company Number: US-AstraZeneca-2002UW00120

PATIENT
  Age: 50 Year
  Weight: 77.3 kg

DRUGS (3)
  1. ESOMEPRAZOLE [Suspect]
     Active Substance: ESOMEPRAZOLE
     Dosage: 20 MILLIGRAM, QD
  2. WELLBUTRIN [Concomitant]
     Active Substance: BUPROPION HYDROCHLORIDE
  3. UNSPECIFIED INGREDIENT [Concomitant]
     Active Substance: UNSPECIFIED INGREDIENT

REACTIONS (3)
  - Tinnitus [Unknown]
  - Blood pressure increased [Not Recovered/Not Resolved]
  - Ejaculation delayed [Not Recovered/Not Resolved]
